FAERS Safety Report 8915375 (Version 1)
Quarter: 2012Q4

REPORT INFORMATION
  Report Type: 
  Country: US (occurrence: US)
  Receive Date: 20121119
  Receipt Date: 20121119
  Transmission Date: 20130627
  Serious: No
  Sender: FDA-Public Use
  Company Number: US-PFIZER INC-2012288437

PATIENT
  Age: 45 Year
  Sex: Female
  Weight: 48.98 kg

DRUGS (5)
  1. EFFEXOR [Suspect]
     Indication: ANXIETY
     Dosage: UNK
  2. EFFEXOR [Suspect]
     Indication: DEPRESSION
  3. PROZAC [Suspect]
     Indication: ANXIETY
     Dosage: 20 mg, daily
  4. PROZAC [Suspect]
     Indication: DEPRESSION
  5. XANAX [Concomitant]
     Dosage: UNK, as needed

REACTIONS (3)
  - Influenza like illness [Unknown]
  - Dizziness [Unknown]
  - Malaise [Unknown]
